FAERS Safety Report 10239507 (Version 2)
Quarter: 2014Q2

REPORT INFORMATION
  Report Type: Spontaneous
  Country: US (occurrence: US)
  Receive Date: 20140616
  Receipt Date: 20140616
  Transmission Date: 20141212
  Serious: Yes (Hospitalization, Disabling, Other)
  Sender: FDA-Public Use
  Company Number: US-009507513-2010SP040550

PATIENT
  Sex: Female
  Weight: 86.18 kg

DRUGS (5)
  1. NUVARING [Suspect]
     Indication: CONTRACEPTION
     Dosage: EVERY 3 WEEKS
     Route: 067
     Dates: start: 20070810, end: 20080814
  2. LEXAPRO [Suspect]
     Indication: ANXIETY
     Dosage: UNK
     Dates: end: 20070907
  3. DILANTIN [Suspect]
     Indication: CONVULSION
  4. ADVIL [Concomitant]
     Indication: NECK PAIN
     Dosage: 400 MG, TID
     Dates: start: 20080810, end: 20080813
  5. HEMP [Concomitant]
     Dates: start: 20080808

REACTIONS (21)
  - Convulsion [Unknown]
  - Cerebral haemorrhage [Not Recovered/Not Resolved]
  - Haemorrhagic stroke [Recovered/Resolved with Sequelae]
  - Transient ischaemic attack [Unknown]
  - Intracranial venous sinus thrombosis [Recovered/Resolved]
  - Jugular vein thrombosis [Unknown]
  - Carotid artery thrombosis [Unknown]
  - Post-traumatic stress disorder [Not Recovered/Not Resolved]
  - Blood bicarbonate decreased [Unknown]
  - Insomnia [Unknown]
  - Jaw disorder [Unknown]
  - Parosmia [Unknown]
  - Sinus congestion [Unknown]
  - Amblyopia [Unknown]
  - Depression [Not Recovered/Not Resolved]
  - Nausea [Unknown]
  - Dysmenorrhoea [Unknown]
  - Hepatic enzyme increased [Not Recovered/Not Resolved]
  - Premenstrual syndrome [Unknown]
  - Libido decreased [Unknown]
  - Urticaria [Unknown]
